FAERS Safety Report 11687907 (Version 2)
Quarter: 2015Q4

REPORT INFORMATION
  Report Type: Report from Study
  Country: US (occurrence: US)
  Receive Date: 20151030
  Receipt Date: 20151105
  Transmission Date: 20160304
  Serious: No
  Sender: FDA-Public Use
  Company Number: PHEH2015US022155

PATIENT
  Age: 44 Year
  Sex: Male

DRUGS (1)
  1. MEKINIST [Suspect]
     Active Substance: TRAMETINIB DIMETHYL SULFOXIDE
     Indication: PRODUCT USED FOR UNKNOWN INDICATION
     Dosage: 7MG/KG, WEEKLY
     Route: 065

REACTIONS (3)
  - Incorrect drug administration rate [Unknown]
  - Drug ineffective [Unknown]
  - Incorrect dose administered [Unknown]
